FAERS Safety Report 14973098 (Version 2)
Quarter: 2018Q2

REPORT INFORMATION
  Report Type: Spontaneous
  Country: US (occurrence: US)
  Receive Date: 20180605
  Receipt Date: 20180622
  Transmission Date: 20180711
  Serious: Yes (Other)
  Sender: FDA-Public Use
  Company Number: US-ROCHE-2130842

PATIENT
  Sex: Female

DRUGS (1)
  1. LUCENTIS [Suspect]
     Active Substance: RANIBIZUMAB
     Indication: NEOVASCULAR AGE-RELATED MACULAR DEGENERATION
     Dosage: DOSE: UNKNOWN
     Route: 065
     Dates: start: 201712

REACTIONS (12)
  - Ill-defined disorder [Unknown]
  - Anger [Recovering/Resolving]
  - Eye pain [Unknown]
  - Injection site pain [Unknown]
  - Blindness [Unknown]
  - Depressed mood [Unknown]
  - Eye haemorrhage [Unknown]
  - Photophobia [Unknown]
  - Fatigue [Unknown]
  - Visual impairment [Unknown]
  - Visual acuity reduced [Unknown]
  - Visual impairment [Recovering/Resolving]
